FAERS Safety Report 9168496 (Version 1)
Quarter: 2013Q1

REPORT INFORMATION
  Report Type: Spontaneous
  Country: US (occurrence: None)
  Receive Date: 20130314
  Receipt Date: 20130314
  Transmission Date: 20140127
  Serious: Yes (Hospitalization)
  Sender: FDA-Public Use
  Company Number: None

PATIENT
  Age: 57 Year
  Sex: Female

DRUGS (1)
  1. HUMIRA [Suspect]
     Dosage: HUMIRA 40MG, EVERY 14 DAYS SUBCUTANEOUSLY, SEVERAL YEARS
     Route: 058

REACTIONS (2)
  - Pancreatitis [None]
  - Injection site erythema [None]
